FAERS Safety Report 7428497-3 (Version None)
Quarter: 2011Q2

REPORT INFORMATION
  Report Type: 
  Country: None (occurrence: None)
  Receive Date: 20110413
  Receipt Date: 20101229
  Transmission Date: 20111010
  Serious: Yes (Hospitalization)
  Sender: FDA-Public Use
  Company Number: GB-021814

PATIENT
  Age: 75 Year
  Sex: Female

DRUGS (3)
  1. (CHLORAMBUCIL) [Suspect]
     Indication: CHRONIC LYMPHOCYTIC LEUKAEMIA
     Dosage: ORAL
     Route: 048
     Dates: start: 20101201
  2. LISINOPRIL [Concomitant]
  3. ALLOPURINOL [Concomitant]

REACTIONS (2)
  - RASH [None]
  - H1N1 INFLUENZA [None]
